FAERS Safety Report 15601543 (Version 1)
Quarter: 2018Q4

REPORT INFORMATION
  Report Type: Report from Study
  Country: US (occurrence: US)
  Receive Date: 20181109
  Receipt Date: 20181109
  Transmission Date: 20190205
  Serious: Yes (Hospitalization)
  Sender: FDA-Public Use
  Company Number: US-BAYER-2018-203438

PATIENT
  Age: 67 Year
  Sex: Male

DRUGS (1)
  1. NEXAVAR [Suspect]
     Active Substance: SORAFENIB
     Indication: HEPATOCELLULAR CARCINOMA
     Dosage: 400 MG, BID WITH MEALS
     Route: 048
     Dates: start: 20180831, end: 20181020

REACTIONS (5)
  - White blood cell count decreased [Recovered/Resolved]
  - Pain of skin [Recovered/Resolved]
  - Cardiac flutter [Recovered/Resolved]
  - Pain [Recovered/Resolved]
  - Subcutaneous abscess [Recovering/Resolving]

NARRATIVE: CASE EVENT DATE: 2018
